FAERS Safety Report 18418164 (Version 20)
Quarter: 2023Q2

REPORT INFORMATION
  Report Type: Other
  Country: DE (occurrence: None)
  Receive Date: 20201023
  Receipt Date: 20230615
  Transmission Date: 20230722
  Serious: Yes (Hospitalization, Other)
  Sender: FDA-Public Use
  Company Number: DE-ROCHE-2623404

PATIENT
  Age: 54 Year
  Sex: Female

DRUGS (14)
  1. OCREVUS [Suspect]
     Active Substance: OCRELIZUMAB
     Indication: Relapsing-remitting multiple sclerosis
     Dosage: THERAPY DATES- 28/MAY/2020 (300 MG)
     Route: 042
     Dates: start: 20200513
  2. OCREVUS [Suspect]
     Active Substance: OCRELIZUMAB
     Route: 042
     Dates: start: 202012
  3. OCREVUS [Suspect]
     Active Substance: OCRELIZUMAB
     Route: 042
     Dates: start: 20210712
  4. OCREVUS [Suspect]
     Active Substance: OCRELIZUMAB
     Route: 042
     Dates: start: 20200513, end: 20220113
  5. PROCHLORPERAZINE [Suspect]
     Active Substance: PROCHLORPERAZINE
     Indication: Product used for unknown indication
     Route: 065
  6. METAMIZOLE [Concomitant]
     Active Substance: METAMIZOLE
  7. PANTOPRAZOLE SODIUM [Concomitant]
     Active Substance: PANTOPRAZOLE SODIUM
  8. CALCIUM [Concomitant]
     Active Substance: CALCIUM
  9. LEVOTHYROXINE SODIUM [Concomitant]
     Active Substance: LEVOTHYROXINE SODIUM
  10. GABAPENTIN [Concomitant]
     Active Substance: GABAPENTIN
  11. AMITRIPTYLINE [Concomitant]
     Active Substance: AMITRIPTYLINE
  12. CORTISONE [Concomitant]
     Active Substance: CORTISONE
  13. CLEMASTINE FUMARATE [Concomitant]
     Active Substance: CLEMASTINE FUMARATE
  14. TILIDINE [Concomitant]
     Active Substance: TILIDINE

REACTIONS (31)
  - Vulvovaginal inflammation [Not Recovered/Not Resolved]
  - Uterine inflammation [Not Recovered/Not Resolved]
  - Vulval abscess [Not Recovered/Not Resolved]
  - Gastric volvulus [Unknown]
  - Polyp [Recovered/Resolved]
  - Throat irritation [Recovered/Resolved]
  - Pharyngitis [Recovered/Resolved]
  - Fatigue [Not Recovered/Not Resolved]
  - Hypotension [Recovered/Resolved]
  - Intervertebral disc protrusion [Not Recovered/Not Resolved]
  - White blood cell count increased [Recovered/Resolved]
  - Neurodermatitis [Recovered/Resolved]
  - Asthenia [Recovered/Resolved]
  - Gout [Recovered/Resolved]
  - Muscle spasticity [Recovered/Resolved]
  - Joint injury [Not Recovered/Not Resolved]
  - Headache [Recovered/Resolved]
  - Limb discomfort [Unknown]
  - Stress fracture [Recovered/Resolved]
  - Stress at work [Not Recovered/Not Resolved]
  - Melanocytic naevus [Recovered/Resolved]
  - Thyroid disorder [Recovered/Resolved]
  - C-reactive protein increased [Recovered/Resolved]
  - Diarrhoea [Recovered/Resolved]
  - Rash [Not Recovered/Not Resolved]
  - Duodenitis [Not Recovered/Not Resolved]
  - Oesophagitis [Not Recovered/Not Resolved]
  - Colitis [Not Recovered/Not Resolved]
  - COVID-19 [Recovered/Resolved]
  - Dyspnoea exertional [Not Recovered/Not Resolved]
  - Arthralgia [Not Recovered/Not Resolved]

NARRATIVE: CASE EVENT DATE: 20200513
